FAERS Safety Report 18536689 (Version 5)
Quarter: 2021Q3

REPORT INFORMATION
  Report Type: Report from Study
  Country: DE (occurrence: DE)
  Receive Date: 20201123
  Receipt Date: 20210813
  Transmission Date: 20211014
  Serious: Yes (Other)
  Sender: FDA-Public Use
  Company Number: DE-ALXN-A202016864

PATIENT
  Age: 13 Year
  Sex: Male
  Weight: 45 kg

DRUGS (4)
  1. STRENSIQ [Suspect]
     Active Substance: ASFOTASE ALFA
     Dosage: 2 MG/KG, TIW
     Route: 058
     Dates: start: 20140224
  2. VITAMIN D                          /00107901/ [Concomitant]
     Active Substance: ERGOCALCIFEROL
     Indication: PRODUCT USED FOR UNKNOWN INDICATION
     Dosage: 1000 IU, QD
     Route: 065
  3. STRENSIQ [Suspect]
     Active Substance: ASFOTASE ALFA
     Indication: HYPOPHOSPHATASIA
     Dosage: 2 MG/KG, TIW (40 MG/ML)
     Route: 058
     Dates: start: 20130320, end: 20140221
  4. STRENSIQ [Suspect]
     Active Substance: ASFOTASE ALFA
     Dosage: 2 MG/KG, TIW (100 MG/ML )
     Route: 058
     Dates: start: 20201118

REACTIONS (1)
  - Injection related reaction [Recovered/Resolved]

NARRATIVE: CASE EVENT DATE: 20201113
